FAERS Safety Report 10784236 (Version 1)
Quarter: 2015Q1

REPORT INFORMATION
  Report Type: Spontaneous
  Country: US (occurrence: US)
  Receive Date: 20150211
  Receipt Date: 20150211
  Transmission Date: 20150721
  Serious: Yes (Other)
  Sender: FDA-Public Use
  Company Number: US-ASTRAZENECA-2015SE11544

PATIENT
  Age: 56 Year
  Sex: Female
  Weight: 72.6 kg

DRUGS (3)
  1. ZOMIG [Suspect]
     Active Substance: ZOLMITRIPTAN
     Indication: MIGRAINE
     Dosage: 5 MG ONCE OR TWICE A MONTH AS REQUIRED
     Route: 048
     Dates: start: 2007
  2. REMERON [Concomitant]
     Active Substance: MIRTAZAPINE
  3. VITAMINS [Concomitant]
     Active Substance: VITAMINS

REACTIONS (2)
  - Breast hyperplasia [Unknown]
  - Hepatic adenoma [Unknown]

NARRATIVE: CASE EVENT DATE: 2010
